FAERS Safety Report 23788368 (Version 1)
Quarter: 2024Q2

REPORT INFORMATION
  Report Type: Spontaneous
  Country: US (occurrence: US)
  Receive Date: 20240426
  Receipt Date: 20240426
  Transmission Date: 20240716
  Serious: Yes (Death, Other)
  Sender: FDA-Public Use
  Company Number: US-PFIZER INC-202400093828

PATIENT
  Age: 90 Year
  Sex: Male
  Weight: 63.05 kg

DRUGS (1)
  1. VYNDAMAX [Suspect]
     Active Substance: TAFAMIDIS
     Dosage: ONE A DAY

REACTIONS (3)
  - Pneumothorax [Fatal]
  - Pulmonary oedema [Fatal]
  - Dyspnoea [Fatal]
